FAERS Safety Report 4913602-0 (Version None)
Quarter: 2006Q1

REPORT INFORMATION
  Report Type: 
  Country: None (occurrence: None)
  Receive Date: 20060214
  Receipt Date: 20060214
  Transmission Date: 20060701
  Serious: Yes (Hospitalization)
  Sender: FDA-Public Use
  Company Number: None

PATIENT
  Sex: Female

DRUGS (2)
  1. VYTORIN [Suspect]
     Dosage: DAILY PO
     Route: 048
  2. MORPHINE [Suspect]
     Dosage: PO
     Route: 048

REACTIONS (3)
  - GENERALISED ERYTHEMA [None]
  - POST PROCEDURAL COMPLICATION [None]
  - RASH GENERALISED [None]
